FAERS Safety Report 6315272-6 (Version None)
Quarter: 2009Q3

REPORT INFORMATION
  Report Type: 
  Country: None (occurrence: None)
  Receive Date: 20090819
  Receipt Date: 20090813
  Transmission Date: 20100115
  Serious: Yes (Hospitalization, Other)
  Sender: FDA-Public Use
  Company Number: PHHY2009FR34611

PATIENT
  Age: 44 Year
  Sex: Female

DRUGS (1)
  1. DICLOFENAC [Suspect]
     Indication: BACK PAIN

REACTIONS (15)
  - ABDOMINAL PAIN [None]
  - ADHESION [None]
  - BLOOD PRESSURE INCREASED [None]
  - COLITIS ISCHAEMIC [None]
  - DIARRHOEA [None]
  - ENDOMETRIOSIS [None]
  - IUCD COMPLICATION [None]
  - LAPAROSCOPIC SURGERY [None]
  - LARGE INTESTINAL ULCER [None]
  - LARGE INTESTINE PERFORATION [None]
  - MELAENA [None]
  - NODULE [None]
  - PAIN [None]
  - RECTAL HAEMORRHAGE [None]
  - SIGMOIDECTOMY [None]
